FAERS Safety Report 8959726 (Version 1)
Quarter: 2012Q4

REPORT INFORMATION
  Report Type: Report from Study
  Country: US (occurrence: US)
  Receive Date: 20121212
  Receipt Date: 20121212
  Transmission Date: 20130627
  Serious: Yes (Other)
  Sender: FDA-Public Use
  Company Number: US-ROCHE-1112246

PATIENT
  Age: 46 Year
  Sex: Female
  Weight: 156.63 kg

DRUGS (3)
  1. CAPECITABINE [Suspect]
     Indication: URETHRAL CANCER
     Route: 048
     Dates: start: 20120825, end: 201211
  2. IMODIUM [Concomitant]
  3. BMX (DIPHENHYDRAMINE HCL/LIDOCAINE HCL/NYSTATIN) [Concomitant]

REACTIONS (3)
  - Stomatitis [Recovering/Resolving]
  - Diarrhoea [Recovered/Resolved]
  - Disease progression [Not Recovered/Not Resolved]
